FAERS Safety Report 17311731 (Version 2)
Quarter: 2020Q1

REPORT INFORMATION
  Report Type: Other
  Country: IT (occurrence: IT)
  Receive Date: 20200123
  Receipt Date: 20200213
  Transmission Date: 20200409
  Serious: Yes (Other)
  Sender: FDA-Public Use
  Company Number: IT-CELLTRION INC.-2020IT017736

PATIENT

DRUGS (1)
  1. TRASTUZUMAB (UNKNOWN) [Suspect]
     Active Substance: TRASTUZUMAB
     Indication: BREAST CANCER STAGE II
     Dosage: 600 MG, CYCLIC; PHARMACEUTICAL DOSE FORM: ORAL SOLUTION
     Route: 058

REACTIONS (5)
  - Cardiotoxicity [Not Recovered/Not Resolved]
  - Product dosage form issue [Unknown]
  - Product use issue [Unknown]
  - Hypokinesia [Not Recovered/Not Resolved]
  - Overdose [Unknown]

NARRATIVE: CASE EVENT DATE: 20191128
